FAERS Safety Report 12966640 (Version 2)
Quarter: 2018Q1

REPORT INFORMATION
  Report Type: Report from Study
  Country: ES (occurrence: ES)
  Receive Date: 20161122
  Receipt Date: 20180115
  Transmission Date: 20180508
  Serious: Yes (Death, Hospitalization, Other)
  Sender: FDA-Public Use
  Company Number: ES-BRISTOL-MYERS SQUIBB COMPANY-BMS-2016-084286

PATIENT
  Age: 70 Year
  Sex: Male

DRUGS (2)
  1. NIVOLUMAB [Suspect]
     Active Substance: NIVOLUMAB
     Indication: INTRAOCULAR MELANOMA
     Dosage: 74 MG, UNK
     Route: 042
     Dates: start: 20160902, end: 20160922
  2. IPILIMUMAB [Suspect]
     Active Substance: IPILIMUMAB
     Indication: INTRAOCULAR MELANOMA
     Dosage: 222 MG, UNK
     Route: 042
     Dates: start: 20160902

REACTIONS (2)
  - Intervertebral disc protrusion [Fatal]
  - Guillain-Barre syndrome [Fatal]

NARRATIVE: CASE EVENT DATE: 20161004
